FAERS Safety Report 7335574-4 (Version None)
Quarter: 2011Q1

REPORT INFORMATION
  Report Type: 
  Country: None (occurrence: None)
  Receive Date: 20110301
  Receipt Date: 20110301
  Transmission Date: 20110831
  Serious: Yes (Other)
  Sender: FDA-Public Use
  Company Number: None

PATIENT
  Age: 50 Year
  Sex: Female
  Weight: 83.4619 kg

DRUGS (1)
  1. FLAGYL [Suspect]
     Indication: VAGINITIS BACTERIAL
     Dosage: 1200MG 1 TABLET TWICE A D PO
     Route: 048
     Dates: start: 20110225, end: 20110226

REACTIONS (3)
  - PRURITUS [None]
  - SKIN IRRITATION [None]
  - RASH [None]
